FAERS Safety Report 23886711 (Version 1)
Quarter: 2024Q2

REPORT INFORMATION
  Report Type: Report from Study
  Country: CA (occurrence: CA)
  Receive Date: 20240522
  Receipt Date: 20240522
  Transmission Date: 20240716
  Serious: Yes (Other)
  Sender: FDA-Public Use
  Company Number: CA-ABBVIE-5639448

PATIENT
  Age: 59 Year
  Sex: Male
  Weight: 91 kg

DRUGS (2)
  1. HUMIRA [Suspect]
     Active Substance: ADALIMUMAB
     Indication: Crohn^s disease
     Route: 058
     Dates: start: 2007, end: 20240128
  2. USTEKINUMAB [Concomitant]
     Active Substance: USTEKINUMAB
     Indication: Product used for unknown indication
     Dates: start: 2024

REACTIONS (5)
  - Hepatic cirrhosis [Unknown]
  - Pleural effusion [Recovering/Resolving]
  - Splenomegaly [Unknown]
  - Ascites [Recovering/Resolving]
  - Non-alcoholic fatty liver [Unknown]

NARRATIVE: CASE EVENT DATE: 20240116
